FAERS Safety Report 5217776-6 (Version None)
Quarter: 2007Q1

REPORT INFORMATION
  Report Type: 
  Country: None (occurrence: None)
  Receive Date: 20061130
  Receipt Date: 20060821
  Transmission Date: 20070707
  Serious: Yes (Hospitalization)
  Sender: FDA-Public Use
  Company Number: US200608004622

PATIENT
  Age: 18 Year
  Sex: Female

DRUGS (1)
  1. ZYPREXA [Suspect]
     Indication: EATING DISORDER
     Dates: start: 20060101

REACTIONS (2)
  - INTENTIONAL OVERDOSE [None]
  - SUICIDE ATTEMPT [None]
